FAERS Safety Report 11277115 (Version 1)
Quarter: 2015Q3

REPORT INFORMATION
  Report Type: Spontaneous
  Country: GB (occurrence: GB)
  Receive Date: 20150716
  Receipt Date: 20150716
  Transmission Date: 20151125
  Serious: Yes (Other)
  Sender: FDA-Public Use
  Company Number: PHHY2015GB082311

PATIENT

DRUGS (1)
  1. RAMIPRIL. [Suspect]
     Active Substance: RAMIPRIL
     Indication: HYPERTENSION
     Dosage: 2.5 MG, UNK
     Route: 065

REACTIONS (2)
  - Vision blurred [Not Recovered/Not Resolved]
  - Vitreous floaters [Not Recovered/Not Resolved]
